FAERS Safety Report 9232031 (Version 1)
Quarter: 2013Q2

REPORT INFORMATION
  Report Type: Spontaneous
  Country: US (occurrence: US)
  Receive Date: 20130415
  Receipt Date: 20130415
  Transmission Date: 20140414
  Serious: No
  Sender: FDA-Public Use
  Company Number: US-PFIZER INC-2013117872

PATIENT
  Sex: Female

DRUGS (4)
  1. NEURONTIN [Suspect]
     Indication: NEUROPATHY PERIPHERAL
     Dosage: 600 MG, 4X/DAY
     Dates: end: 201304
  2. TEVETEN [Concomitant]
     Indication: BLOOD PRESSURE ABNORMAL
     Dosage: 300 MG, 1X/DAY
  3. TRENTAL [Concomitant]
     Indication: CARDIOVASCULAR DISORDER
     Dosage: 400 MG, 3X/DAY
  4. ASPIRIN [Concomitant]
     Indication: MYOCARDIAL INFARCTION
     Dosage: 81 MG, 1X/DAY

REACTIONS (2)
  - Blood triglycerides increased [Unknown]
  - Blood cholesterol abnormal [Unknown]
